FAERS Safety Report 8773352 (Version 2)
Quarter: 2012Q4

REPORT INFORMATION
  Report Type: 
  Country: US (occurrence: US)
  Receive Date: 20120907
  Receipt Date: 20121001
  Transmission Date: 20130627
  Serious: No
  Sender: FDA-Public Use
  Company Number: US-PFIZER INC-2012220194

PATIENT
  Age: 50 Year
  Sex: Female
  Weight: 126 kg

DRUGS (4)
  1. LYRICA [Suspect]
     Indication: NERVE INJURY
     Dosage: 50 mg, 2x/day
     Dates: start: 20120828
  2. HYDROMORPHONE [Suspect]
     Indication: NEURALGIA
     Dosage: 4 mg, 4x/day
     Dates: end: 20120827
  3. XOPENEX [Concomitant]
     Indication: ASTHMA
     Dosage: two puffs, as needed
  4. NEXIUM [Concomitant]
     Indication: DYSPEPSIA
     Dosage: 40 mg, as needed

REACTIONS (4)
  - Drug ineffective [Unknown]
  - Fatigue [Unknown]
  - Hypoaesthesia [Not Recovered/Not Resolved]
  - Dyskinesia [Not Recovered/Not Resolved]
